FAERS Safety Report 25644562 (Version 3)
Quarter: 2025Q3

REPORT INFORMATION
  Report Type: Report from Study
  Country: US (occurrence: US)
  Receive Date: 20250805
  Receipt Date: 20250915
  Transmission Date: 20251020
  Serious: Yes (Hospitalization, Other)
  Sender: OTSUKA
  Company Number: US-MMM-Otsuka-GC6L1OF2

PATIENT
  Age: 79 Year
  Sex: Male

DRUGS (4)
  1. BREXPIPRAZOLE [Suspect]
     Active Substance: BREXPIPRAZOLE
     Indication: Frontotemporal dementia
     Dosage: 2 MG, QD (ONCE DAILY)
     Route: 065
     Dates: start: 202506
  2. BREXPIPRAZOLE [Suspect]
     Active Substance: BREXPIPRAZOLE
     Indication: Dementia
  3. BREXPIPRAZOLE [Suspect]
     Active Substance: BREXPIPRAZOLE
     Indication: Personality disorder
  4. BREXPIPRAZOLE [Suspect]
     Active Substance: BREXPIPRAZOLE
     Indication: Agitation

REACTIONS (8)
  - Dementia [Not Recovered/Not Resolved]
  - Prostatomegaly [Recovering/Resolving]
  - Urinary retention [Recovering/Resolving]
  - Abnormal behaviour [Unknown]
  - Patient elopement [Unknown]
  - Fatigue [Unknown]
  - Insomnia [Unknown]
  - Off label use [Not Recovered/Not Resolved]

NARRATIVE: CASE EVENT DATE: 20250601
